FAERS Safety Report 4722773-0 (Version None)
Quarter: 2005Q3

REPORT INFORMATION
  Report Type: 
  Country: None (occurrence: None)
  Receive Date: 20050722
  Receipt Date: 20050713
  Transmission Date: 20060218
  Serious: Yes (Hospitalization)
  Sender: FDA-Public Use
  Company Number: IT-JNJFOC-20050702392

PATIENT
  Sex: Male

DRUGS (2)
  1. DAKTARIN [Suspect]
     Indication: ORAL CANDIDIASIS
     Route: 048
     Dates: start: 20050708, end: 20050713
  2. WARFARIN SODIUM [Concomitant]
     Route: 065

REACTIONS (5)
  - ANAEMIA [None]
  - ECCHYMOSIS [None]
  - HAEMORRHAGE [None]
  - INTERNATIONAL NORMALISED RATIO INCREASED [None]
  - TONGUE HAEMATOMA [None]
